FAERS Safety Report 7631611-8 (Version None)
Quarter: 2011Q3

REPORT INFORMATION
  Report Type: 
  Country: None (occurrence: None)
  Receive Date: 20110725
  Receipt Date: 20110120
  Transmission Date: 20111222
  Serious: No
  Sender: FDA-Public Use
  Company Number: US-BRISTOL-MYERS SQUIBB COMPANY-15500960

PATIENT
  Age: 86 Year
  Sex: Male
  Weight: 95 kg

DRUGS (17)
  1. COUMADIN [Suspect]
     Dosage: THERAPY:FOR YEARS INTERRUPTED FOR 5D AND RESTARTED
  2. NORVASC [Concomitant]
  3. DIGOXIN [Concomitant]
  4. OXYBUTYNIN [Concomitant]
  5. METOPROLOL TARTRATE [Concomitant]
  6. HYDROXYUREA [Concomitant]
  7. FINASTERIDE [Concomitant]
  8. ARICEPT [Concomitant]
  9. NITROGLYCERIN [Concomitant]
  10. BENICAR [Concomitant]
  11. TRAMADOL HCL [Concomitant]
  12. OMEPRAZOLE [Concomitant]
  13. PROPRANOLOL [Concomitant]
  14. CETIRIZINE HCL [Concomitant]
  15. EYE DROPS [Concomitant]
  16. CASODEX [Concomitant]
  17. DIAZEPAM [Concomitant]

REACTIONS (2)
  - POLLAKIURIA [None]
  - COUGH [None]
